FAERS Safety Report 6128099-5 (Version None)
Quarter: 2009Q1

REPORT INFORMATION
  Report Type: 
  Country: None (occurrence: None)
  Receive Date: 20090320
  Receipt Date: 20090320
  Transmission Date: 20090719
  Serious: Yes (Death)
  Sender: FDA-Public Use
  Company Number: None

PATIENT
  Sex: Male
  Weight: 58.9676 kg

DRUGS (6)
  1. METHOTREXATE [Suspect]
     Indication: PSORIATIC ARTHROPATHY
     Dosage: 6 TABLETS ONCE WEEKLY PO
     Route: 048
     Dates: start: 20031117, end: 20070825
  2. ASPIRIN [Concomitant]
  3. SIMVASTATIN [Concomitant]
  4. FOLIC ACID [Concomitant]
  5. ANDROGEL [Concomitant]
  6. FISH OIL [Concomitant]

REACTIONS (1)
  - PULMONARY FIBROSIS [None]
